FAERS Safety Report 6727212-6 (Version None)
Quarter: 2010Q2

REPORT INFORMATION
  Report Type: 
  Country: None (occurrence: None)
  Receive Date: 20100517
  Receipt Date: 20100511
  Transmission Date: 20101027
  Serious: Yes (Disabling)
  Sender: FDA-Public Use
  Company Number: US-ROXANE LABORATORIES, INC.-2010-DE-02652GD

PATIENT

DRUGS (1)
  1. ORAMORPH SR [Suspect]

REACTIONS (1)
  - DEAFNESS [None]
